FAERS Safety Report 5007819-7 (Version None)
Quarter: 2006Q2

REPORT INFORMATION
  Report Type: 
  Country: None (occurrence: None)
  Receive Date: 20060522
  Receipt Date: 20060109
  Transmission Date: 20061013
  Serious: Yes (Other)
  Sender: FDA-Public Use
  Company Number: PHMT2006CA00481

PATIENT
  Age: 49 Year
  Sex: Male

DRUGS (1)
  1. SIMULECT [Suspect]
     Indication: IMMUNOSUPPRESSION
     Dosage: UNK, UNK
     Route: 042
     Dates: start: 20050314, end: 20051201

REACTIONS (3)
  - ANTIBODY TEST ABNORMAL [None]
  - RASH [None]
  - T-LYMPHOCYTE COUNT INCREASED [None]
